FAERS Safety Report 10696728 (Version 5)
Quarter: 2019Q2

REPORT INFORMATION
  Report Type: Report from Study
  Country: CA (occurrence: CA)
  Receive Date: 20150108
  Receipt Date: 20190620
  Transmission Date: 20190711
  Serious: Yes (Other)
  Sender: FDA-Public Use
  Company Number: CA-ROCHE-1217246

PATIENT
  Age: 46 Year
  Sex: Female
  Weight: 86 kg

DRUGS (10)
  1. ESOMEPRAZOLE. [Concomitant]
     Active Substance: ESOMEPRAZOLE MAGNESIUM
  2. RITUXAN [Suspect]
     Active Substance: RITUXIMAB
     Dosage: 500MG/10MG/ML, DAY 1 AND DAY 15
     Route: 042
     Dates: start: 20190613
  3. ACETAMINOPHEN. [Concomitant]
     Active Substance: ACETAMINOPHEN
     Indication: PREMEDICATION
     Route: 048
     Dates: start: 20130416
  4. DIPHENHYDRAMINE HCL [Concomitant]
     Active Substance: DIPHENHYDRAMINE HYDROCHLORIDE
     Indication: PREMEDICATION
     Route: 048
     Dates: start: 20130416
  5. METHYLPREDNISOLONE. [Concomitant]
     Active Substance: METHYLPREDNISOLONE
     Indication: PREMEDICATION
     Route: 042
     Dates: start: 20130416
  6. RITUXAN [Suspect]
     Active Substance: RITUXIMAB
     Indication: GRANULOMATOSIS WITH POLYANGIITIS
     Route: 042
     Dates: start: 20130416
  7. SULFATRIM [Concomitant]
     Active Substance: SULFAMETHOXAZOLE\TRIMETHOPRIM
  8. VITAMIN E NOS [Concomitant]
     Active Substance: .ALPHA.-TOCOPHEROL
  9. PREDNISONE. [Concomitant]
     Active Substance: PREDNISONE
  10. TYLENOL SINUS [PARACETAMOL;PSEUDOEPHEDRINE HYDROCHLORIDE] [Concomitant]

REACTIONS (6)
  - Throat irritation [Recovered/Resolved]
  - Infusion related reaction [Recovered/Resolved]
  - Nasal pruritus [Recovered/Resolved]
  - Weight increased [Unknown]
  - Weight decreased [Unknown]
  - Ear pruritus [Recovered/Resolved]

NARRATIVE: CASE EVENT DATE: 20130416
